FAERS Safety Report 12376945 (Version 1)
Quarter: 2016Q2

REPORT INFORMATION
  Report Type: Report from Study
  Country: US (occurrence: US)
  Receive Date: 20160517
  Receipt Date: 20160517
  Transmission Date: 20160815
  Serious: No
  Sender: FDA-Public Use
  Company Number: US-MALLINCKRODT-T201503696

PATIENT
  Sex: Female

DRUGS (1)
  1. REPOSITORY CORTICOTROPIN INJECTION [Suspect]
     Active Substance: CORTICOTROPIN
     Indication: PROTEINURIA
     Dosage: 80 UNITS/2X A WEEK
     Route: 058
     Dates: start: 20150225

REACTIONS (4)
  - Urinary tract infection [Unknown]
  - Endodontic procedure [Unknown]
  - Drug ineffective [Unknown]
  - Dyspnoea [Unknown]
